FAERS Safety Report 6355208-5 (Version None)
Quarter: 2009Q3

REPORT INFORMATION
  Report Type: 
  Country: None (occurrence: None)
  Receive Date: 20090914
  Receipt Date: 20090903
  Transmission Date: 20100115
  Serious: Yes (Death)
  Sender: FDA-Public Use
  Company Number: FR-JNJFOC-20090901795

PATIENT

DRUGS (1)
  1. INFLIXIMAB [Suspect]
     Indication: WEGENER'S GRANULOMATOSIS
     Dosage: ON DAY 1, 14 AND 42
     Route: 042

REACTIONS (1)
  - ASPERGILLOSIS [None]
